FAERS Safety Report 18332026 (Version 2)
Quarter: 2020Q4

REPORT INFORMATION
  Report Type: Report from Study
  Country: US (occurrence: US)
  Receive Date: 20200930
  Receipt Date: 20201005
  Transmission Date: 20210113
  Serious: Yes (Life-Threatening)
  Sender: FDA-Public Use
  Company Number: US-PFIZER INC-2020377104

PATIENT
  Age: 15 Year
  Sex: Male

DRUGS (7)
  1. HYDROXYZINE PAMOATE. [Suspect]
     Active Substance: HYDROXYZINE PAMOATE
     Dosage: UNK
  2. MEPERIDINE HCL [Interacting]
     Active Substance: MEPERIDINE HYDROCHLORIDE
     Dosage: UNK
  3. IFOSFAMIDE. [Interacting]
     Active Substance: IFOSFAMIDE
     Indication: PRIMITIVE NEUROECTODERMAL TUMOUR
     Dosage: 1600 MG/M2, CYCLIC OVER 15 MINUTES DAILY FOR FIVE DAYS, ADMINISTERED AT 21- TO 28-DAY INTERVALS
     Route: 042
  4. DEXTROSE. [Concomitant]
     Active Substance: DEXTROSE
     Indication: FLUID REPLACEMENT
     Dosage: 1000 ML/M2  IN 1/3 NORMAL SALINE FOR SIX HOURS FOLLOWING IFOSFAMIDE
     Route: 042
  5. HYDROMORPHONE HYDROCHLORIDE. [Interacting]
     Active Substance: HYDROMORPHONE HYDROCHLORIDE
     Dosage: UNK
  6. THIETHYLPERAZINE [Interacting]
     Active Substance: THIETHYLPERAZINE
     Dosage: UNK
  7. MESNA. [Interacting]
     Active Substance: MESNA
     Indication: PRIMITIVE NEUROECTODERMAL TUMOUR
     Dosage: 400 MG/M2, DAILY (IMMEDIATELY FOLLOWING IFOSFAMIDE, AND AT FOUR AND SIX HOURS AFTER IFOSFAMIDE)

REACTIONS (2)
  - Drug interaction [Unknown]
  - Neurotoxicity [Unknown]
